FAERS Safety Report 7754577-9 (Version None)
Quarter: 2011Q3

REPORT INFORMATION
  Report Type: 
  Country: None (occurrence: None)
  Receive Date: 20110915
  Receipt Date: 20110909
  Transmission Date: 20111222
  Serious: Yes (Other)
  Sender: FDA-Public Use
  Company Number: PHHY2011JP80987

PATIENT
  Age: 73 Year
  Sex: Male

DRUGS (6)
  1. LANSOPRAZOLE [Concomitant]
  2. GEMTUZUMAB OZOGAMICIN [Concomitant]
  3. DEFERASIROX [Suspect]
     Indication: ACUTE MONOCYTIC LEUKAEMIA
     Dosage: 10 MG/KG, PER DAY
     Route: 065
     Dates: start: 20080901
  4. DEFERASIROX [Suspect]
     Dosage: 16 MG/KG, PER DAY
     Route: 065
     Dates: start: 20090501
  5. RED BLOOD CELLS, CONCENTRATED [Concomitant]
  6. DEFERASIROX [Suspect]
     Dosage: 8 MG/KG, PER DAY
     Route: 065
     Dates: start: 20080211

REACTIONS (3)
  - THERAPEUTIC RESPONSE DECREASED [None]
  - BLOOD CREATININE INCREASED [None]
  - CHOLECYSTITIS [None]
